FAERS Safety Report 11236923 (Version 1)
Quarter: 2015Q3

REPORT INFORMATION
  Report Type: Spontaneous
  Country: US (occurrence: US)
  Receive Date: 20150703
  Receipt Date: 20150703
  Transmission Date: 20151125
  Serious: No
  Sender: FDA-Public Use
  Company Number: US-TAKEDA-2015TUS006774

PATIENT
  Age: 33 Year
  Sex: Female
  Weight: 77.98 kg

DRUGS (4)
  1. CONTRAVE [Suspect]
     Active Substance: BUPROPION HYDROCHLORIDE\NALTREXONE HYDROCHLORIDE
     Indication: DEPRESSION
     Dosage: 2 DF, BID
     Route: 048
  2. CONTRAVE [Suspect]
     Active Substance: BUPROPION HYDROCHLORIDE\NALTREXONE HYDROCHLORIDE
     Indication: OVERWEIGHT
     Dosage: UNK
     Route: 048
     Dates: start: 201503, end: 201505
  3. CONTRAVE [Suspect]
     Active Substance: BUPROPION HYDROCHLORIDE\NALTREXONE HYDROCHLORIDE
     Dosage: SEVEN TABLETS, UNK
     Route: 048
     Dates: start: 20150505
  4. CONTRAVE [Suspect]
     Active Substance: BUPROPION HYDROCHLORIDE\NALTREXONE HYDROCHLORIDE
     Dosage: 3 TABLETS IN THE EVENING AND TWO TABLETS AT NIGHT
     Route: 048
     Dates: start: 20150511

REACTIONS (9)
  - Chest discomfort [Recovered/Resolved]
  - Inappropriate schedule of drug administration [Unknown]
  - Urine amphetamine positive [Unknown]
  - Anxiety [Unknown]
  - Overdose [Unknown]
  - Product use issue [Unknown]
  - Abdominal pain upper [Recovered/Resolved]
  - Depression [Unknown]
  - Nausea [Recovered/Resolved]

NARRATIVE: CASE EVENT DATE: 201503
